FAERS Safety Report 5418288-7 (Version None)
Quarter: 2007Q3

REPORT INFORMATION
  Report Type: 
  Country: None (occurrence: None)
  Receive Date: 20070817
  Receipt Date: 20070806
  Transmission Date: 20080115
  Serious: Yes (Hospitalization)
  Sender: FDA-Public Use
  Company Number: US-GILEAD-2007-0012041

PATIENT
  Sex: Female
  Weight: 42.676 kg

DRUGS (13)
  1. AMBRISENTAN [Suspect]
     Indication: PULMONARY HYPERTENSION
     Route: 048
     Dates: start: 20061116
  2. FLOLAN [Concomitant]
     Indication: PULMONARY HYPERTENSION
     Route: 042
     Dates: start: 20040301
  3. REVATIO [Concomitant]
     Indication: PULMONARY HYPERTENSION
     Route: 048
     Dates: start: 20051201
  4. LASIX [Concomitant]
     Indication: PULMONARY HYPERTENSION
     Route: 048
     Dates: start: 20051201
  5. ALDACTONE [Concomitant]
     Indication: PULMONARY HYPERTENSION
     Route: 048
     Dates: start: 20051201
  6. POTASSIUM CHLORIDE [Concomitant]
     Indication: PULMONARY HYPERTENSION
     Route: 048
  7. POTASSIUM CHLORIDE [Concomitant]
     Route: 048
  8. SYNTHROID [Concomitant]
     Indication: HYPOTHYROIDISM
     Route: 048
  9. SYNTHROID [Concomitant]
     Route: 048
  10. SYNTHROID [Concomitant]
     Route: 048
     Dates: start: 20070110, end: 20070507
  11. SYNTHROID [Concomitant]
     Route: 048
     Dates: start: 20060201, end: 20070109
  12. RANITIDINE [Concomitant]
     Indication: DYSPEPSIA
     Route: 048
     Dates: start: 20070110
  13. DEPO-PROVERA [Concomitant]
     Indication: CONTRACEPTION
     Route: 030

REACTIONS (1)
  - MIGRAINE [None]
